FAERS Safety Report 24387072 (Version 2)
Quarter: 2024Q4

REPORT INFORMATION
  Report Type: Spontaneous
  Country: US (occurrence: US)
  Receive Date: 20241002
  Receipt Date: 20241118
  Transmission Date: 20250114
  Serious: Yes (Hospitalization, Other)
  Sender: AMGEN
  Company Number: US-AMGEN-USASP2024191844

PATIENT
  Age: 34 Year
  Sex: Male

DRUGS (28)
  1. PREDNISONE [Suspect]
     Active Substance: PREDNISONE
     Indication: Autoimmune disorder
     Dosage: 60 MILLIGRAM, QD
     Route: 065
  2. RITUXIMAB [Suspect]
     Active Substance: RITUXIMAB
     Indication: Atypical haemolytic uraemic syndrome
     Dosage: UNK, INFUSIONS SCHEDULED EVERY THREE TO SIX MONTHS
     Route: 065
  3. RITUXIMAB [Suspect]
     Active Substance: RITUXIMAB
     Indication: Thrombocytopenic purpura
  4. ETANERCEPT [Suspect]
     Active Substance: ETANERCEPT
     Indication: Autoimmune disorder
     Dosage: UNK
     Route: 065
  5. ETANERCEPT [Suspect]
     Active Substance: ETANERCEPT
  6. ECULIZUMAB [Suspect]
     Active Substance: ECULIZUMAB
     Indication: Autoimmune disorder
     Dosage: UNK
     Route: 065
  7. PROLIA [Suspect]
     Active Substance: DENOSUMAB
     Indication: Osteoporosis
     Dosage: 60 MILLIGRAM, Q6MO
     Route: 065
     Dates: start: 201908
  8. EVENITY [Suspect]
     Active Substance: ROMOSOZUMAB-AQQG
     Indication: Osteoporosis
     Dosage: 210 MILLIGRAM, QMO
     Route: 065
     Dates: start: 202109
  9. EVENITY [Suspect]
     Active Substance: ROMOSOZUMAB-AQQG
     Dosage: 105 MILLIGRAM, Q2WK
     Route: 065
     Dates: start: 202109
  10. METHYLPREDNISOLONE [Concomitant]
     Active Substance: METHYLPREDNISOLONE
     Indication: Atypical haemolytic uraemic syndrome
     Dosage: 100 MILLIGRAM
     Route: 042
  11. METHYLPREDNISOLONE [Concomitant]
     Active Substance: METHYLPREDNISOLONE
     Indication: Thrombocytopenic purpura
  12. GOLIMUMAB [Concomitant]
     Active Substance: GOLIMUMAB
     Indication: Autoimmune disorder
     Dosage: UNK
     Route: 065
  13. MEPOLIZUMAB [Concomitant]
     Active Substance: MEPOLIZUMAB
     Indication: Autoimmune disorder
     Dosage: UNK
     Route: 065
  14. TOFACITINIB [Concomitant]
     Active Substance: TOFACITINIB
     Indication: Autoimmune disorder
  15. ABATACEPT [Concomitant]
     Active Substance: ABATACEPT
     Indication: Autoimmune disorder
  16. METHOTREXATE [Concomitant]
     Active Substance: METHOTREXATE
     Indication: Autoimmune disorder
  17. MYCOPHENOLATE MOFETIL [Concomitant]
     Active Substance: MYCOPHENOLATE MOFETIL
     Indication: Autoimmune disorder
     Dosage: UNK
     Dates: end: 20190401
  18. CYCLOSPORINE [Concomitant]
     Active Substance: CYCLOSPORINE
     Indication: Autoimmune disorder
     Dosage: UNK
     Route: 065
  19. LEVETIRACETAM [Concomitant]
     Active Substance: LEVETIRACETAM
     Indication: Autoimmune disorder
  20. VINCRISTINE [Concomitant]
     Active Substance: VINCRISTINE
     Indication: Autoimmune disorder
  21. ADALIMUMAB [Concomitant]
     Active Substance: ADALIMUMAB
     Indication: Autoimmune disorder
  22. INFLIXIMAB [Concomitant]
     Active Substance: INFLIXIMAB
     Indication: Autoimmune disorder
  23. MERCAPTOPURINE [Concomitant]
     Active Substance: MERCAPTOPURINE
     Indication: Autoimmune disorder
  24. TERIPARATIDE [Concomitant]
     Active Substance: TERIPARATIDE
     Indication: Osteoporosis
     Dosage: 20 MICROGRAM
     Route: 065
     Dates: start: 201808
  25. TERIPARATIDE [Concomitant]
     Active Substance: TERIPARATIDE
     Dosage: 40 MICROGRAM, QD
     Route: 065
  26. Immunoglobulin [Concomitant]
     Indication: Autoimmune disorder
     Dosage: UNK
     Route: 042
  27. BUDESONIDE [Concomitant]
     Active Substance: BUDESONIDE
     Indication: Autoimmune disorder
     Dosage: UNK
     Route: 048
     Dates: start: 20190401, end: 20210628
  28. CERTOLIZUMAB [Concomitant]
     Active Substance: CERTOLIZUMAB
     Indication: Autoimmune disorder
     Dosage: UNK
     Route: 065
     Dates: start: 20191022, end: 20200903

REACTIONS (12)
  - Dyspnoea [Unknown]
  - Spinal compression fracture [Unknown]
  - Atypical haemolytic uraemic syndrome [Unknown]
  - Eosinophilic granulomatosis with polyangiitis [Unknown]
  - Thrombocytopenic purpura [Unknown]
  - Osteoporosis [Unknown]
  - Blood parathyroid hormone increased [Unknown]
  - Injection site reaction [Unknown]
  - Hypocalcaemia [Unknown]
  - Bone disorder [Unknown]
  - Foot deformity [Unknown]
  - Off label use [Unknown]

NARRATIVE: CASE EVENT DATE: 20220401
